FAERS Safety Report 18271460 (Version 1)
Quarter: 2020Q3

REPORT INFORMATION
  Report Type: Spontaneous
  Country: US (occurrence: US)
  Receive Date: 20200916
  Receipt Date: 20200916
  Transmission Date: 20201103
  Serious: Yes (Hospitalization, Disabling, Other)
  Sender: FDA-Public Use
  Company Number: US-SA-2020SA247795

PATIENT

DRUGS (1)
  1. ZANTAC [Suspect]
     Active Substance: RANITIDINE HYDROCHLORIDE

REACTIONS (8)
  - Anhedonia [Unknown]
  - Physical disability [Unknown]
  - Anxiety [Unknown]
  - Injury [Unknown]
  - Somatic symptom disorder [Unknown]
  - Neoplasm malignant [Unknown]
  - Emotional distress [Unknown]
  - Pain [Unknown]
